FAERS Safety Report 5446243-X (Version None)
Quarter: 2007Q3

REPORT INFORMATION
  Report Type: 
  Country: None (occurrence: None)
  Receive Date: 20070731
  Receipt Date: 20070328
  Transmission Date: 20080115
  Serious: Yes (Other)
  Sender: FDA-Public Use
  Company Number: US-2007-011225

PATIENT
  Age: 43 Year
  Sex: Female

DRUGS (1)
  1. MAGNEVIST [Suspect]
     Indication: NUCLEAR MAGNETIC RESONANCE IMAGING
     Dosage: 20 ML, 1 DOSE, INTRAVENOUS
     Route: 042
     Dates: start: 20070201, end: 20070201

REACTIONS (5)
  - CONTRAST MEDIA REACTION [None]
  - DIZZINESS [None]
  - DYSPNOEA [None]
  - PHARYNGEAL OEDEMA [None]
  - THROAT IRRITATION [None]
